FAERS Safety Report 12389756 (Version 2)
Quarter: 2016Q2

REPORT INFORMATION
  Report Type: Spontaneous
  Country: DE (occurrence: DE)
  Receive Date: 20160520
  Receipt Date: 20160607
  Transmission Date: 20160815
  Serious: Yes (Hospitalization, Other)
  Sender: FDA-Public Use
  Company Number: DE-SA-2016SA096281

PATIENT
  Age: 29 Year
  Sex: Female

DRUGS (4)
  1. ACICLOVIR [Concomitant]
     Active Substance: ACYCLOVIR
     Indication: PROPHYLAXIS
     Route: 048
     Dates: start: 20160308
  2. ALEMTUZUMAB [Suspect]
     Active Substance: ALEMTUZUMAB
     Indication: RELAPSING-REMITTING MULTIPLE SCLEROSIS
     Route: 041
     Dates: start: 20160310, end: 20160314
  3. FENISTIL [Concomitant]
     Active Substance: DIMETHINDENE
     Indication: RASH
     Route: 048
     Dates: start: 20160317
  4. OPIPRAMOL [Concomitant]
     Active Substance: OPIPRAMOL
     Indication: INSOMNIA
     Route: 048
     Dates: start: 20160317

REACTIONS (4)
  - Haematoma [Recovering/Resolving]
  - Immune thrombocytopenic purpura [Recovering/Resolving]
  - Platelet count decreased [Not Recovered/Not Resolved]
  - Menorrhagia [Recovering/Resolving]

NARRATIVE: CASE EVENT DATE: 20160512
